FAERS Safety Report 12627072 (Version 1)
Quarter: 2016Q3

REPORT INFORMATION
  Report Type: Spontaneous
  Country: US (occurrence: US)
  Receive Date: 20160805
  Receipt Date: 20160805
  Transmission Date: 20161109
  Serious: No
  Sender: FDA-Public Use
  Company Number: US-INCYTE CORPORATION-2016IN002831

PATIENT
  Sex: Female
  Weight: 68.48 kg

DRUGS (2)
  1. JAKAFI [Suspect]
     Active Substance: RUXOLITINIB
     Indication: MYELOPROLIFERATIVE NEOPLASM
     Dosage: 15 MG, QD
     Route: 048
     Dates: start: 20140814, end: 20160606
  2. JAKAFI [Suspect]
     Active Substance: RUXOLITINIB
     Indication: JANUS KINASE 2 MUTATION
     Dosage: 15 MG, QD
     Route: 048
     Dates: start: 20140821

REACTIONS (2)
  - Off label use [Unknown]
  - Increased appetite [Unknown]
